FAERS Safety Report 8110506-X (Version None)
Quarter: 2012Q1

REPORT INFORMATION
  Report Type: 
  Country: None (occurrence: None)
  Receive Date: 20120202
  Receipt Date: 20120125
  Transmission Date: 20120608
  Serious: Yes (Other)
  Sender: FDA-Public Use
  Company Number: US-ASTRAZENECA-2011SE49569

PATIENT
  Age: 50 Year
  Sex: Female
  Weight: 73.6 kg

DRUGS (9)
  1. VYTORIN [Concomitant]
     Dosage: 10-40 MG TABLET, ONE TABLET EVERY EVENING
     Route: 048
  2. NEXIUM [Suspect]
     Indication: BARRETT'S OESOPHAGUS
     Route: 048
  3. ACIPHEX [Concomitant]
  4. TRACLEER [Concomitant]
     Route: 048
  5. CYANOCOBALAMIN [Concomitant]
     Dosage: 1000 MCG/ML MONTHLY
  6. LASIX [Suspect]
     Route: 048
  7. NEXIUM [Suspect]
     Indication: GASTROOESOPHAGEAL REFLUX DISEASE
     Route: 048
  8. DEXILANT [Concomitant]
  9. VITAMIN D [Concomitant]
     Dosage: 50000 UNITS WEEKLY
     Route: 048

REACTIONS (22)
  - DIABETES MELLITUS [None]
  - HAEMATOCHEZIA [None]
  - PULMONARY FIBROSIS [None]
  - AGITATION [None]
  - DIARRHOEA [None]
  - LUNG DISORDER [None]
  - VENTRICULAR EXTRASYSTOLES [None]
  - HYPOKALAEMIA [None]
  - IRON DEFICIENCY ANAEMIA [None]
  - UTERINE LEIOMYOMA [None]
  - CERVICAL POLYP [None]
  - ASPIRATION [None]
  - MUSCULOSKELETAL STIFFNESS [None]
  - DRUG DOSE OMISSION [None]
  - COLONIC POLYP [None]
  - SYSTEMIC SCLEROSIS [None]
  - OEDEMA PERIPHERAL [None]
  - MENORRHAGIA [None]
  - BREAST MASS [None]
  - PULMONARY ARTERIAL HYPERTENSION [None]
  - ARTERIOSCLEROSIS CORONARY ARTERY [None]
  - ARTHRALGIA [None]
